FAERS Safety Report 6644054-0 (Version None)
Quarter: 2010Q1

REPORT INFORMATION
  Report Type: 
  Country: None (occurrence: None)
  Receive Date: 20100322
  Receipt Date: 20100309
  Transmission Date: 20100710
  Serious: Yes (Death, Hospitalization, Other)
  Sender: FDA-Public Use
  Company Number: NL-ELI_LILLY_AND_COMPANY-NL201003002966

PATIENT
  Sex: Male
  Weight: 79 kg

DRUGS (5)
  1. ZYPREXA [Suspect]
     Indication: PSYCHOTIC DISORDER
     Dosage: 10 MG, DAILY (1/D)
     Dates: start: 20030701, end: 20090201
  2. ZYPREXA [Suspect]
     Dosage: 15 MG, DAILY (1/D)
     Dates: start: 20090201
  3. MOVICOLON [Concomitant]
     Dosage: 1 D/F, 3/D
     Dates: start: 20070101
  4. OMEPRAZOLE [Concomitant]
     Dosage: 40 MG, DAILY (1/D)
     Dates: start: 20090702
  5. PROMETHAZINE [Concomitant]
     Dosage: 25 MG, AS NEEDED
     Dates: start: 20091204

REACTIONS (2)
  - ABDOMINAL SEPSIS [None]
  - ILEUS [None]
